FAERS Safety Report 10304913 (Version 1)
Quarter: 2014Q3

REPORT INFORMATION
  Report Type: Spontaneous
  Country: US (occurrence: None)
  Receive Date: 20140711
  Receipt Date: 20140711
  Transmission Date: 20150326
  Serious: Yes (Other)
  Sender: FDA-Public Use
  Company Number: None

PATIENT
  Age: 83 Year
  Sex: Female

DRUGS (1)
  1. METHOCARBAMOL. [Suspect]
     Active Substance: METHOCARBAMOL
     Indication: MUSCLE SPASMS
     Dosage: 1 TABLET EVERY 8 HRS PRN
     Route: 048
     Dates: start: 20140709, end: 20140710

REACTIONS (4)
  - Blood pressure decreased [None]
  - Hyperhidrosis [None]
  - Hypersensitivity [None]
  - Dark circles under eyes [None]

NARRATIVE: CASE EVENT DATE: 20140710
